FAERS Safety Report 4598347-1 (Version None)
Quarter: 2005Q1

REPORT INFORMATION
  Report Type: 
  Country: None (occurrence: None)
  Receive Date: 20050301
  Receipt Date: 20050301
  Transmission Date: 20050727
  Serious: Yes (Hospitalization)
  Sender: FDA-Public Use
  Company Number: None

PATIENT
  Age: 55 Year
  Sex: Male
  Weight: 98 kg

DRUGS (7)
  1. LIDOCAINE [Suspect]
     Indication: LOCAL ANAESTHESIA
     Dosage: INTRANASAL
     Route: 050
     Dates: start: 20050221
  2. EPI 100MCG [Suspect]
     Indication: HYPOTENSION
  3. MIDAZOLAM [Concomitant]
  4. MORPHINE SULFATE [Concomitant]
  5. PROPOFOL [Concomitant]
  6. SUCCINYLCHOLINE [Concomitant]
  7. NEOSTIGMINE [Concomitant]

REACTIONS (5)
  - BRADYCARDIA [None]
  - ELECTROCARDIOGRAM ST SEGMENT ELEVATION [None]
  - HYPERTENSION [None]
  - HYPOTENSION [None]
  - MYOCARDIAL INFARCTION [None]
